FAERS Safety Report 7290171-4 (Version None)
Quarter: 2011Q1

REPORT INFORMATION
  Report Type: 
  Country: None (occurrence: None)
  Receive Date: 20110214
  Receipt Date: 20110202
  Transmission Date: 20110831
  Serious: Yes (Other)
  Sender: FDA-Public Use
  Company Number: PHHY2011BR08424

PATIENT
  Sex: Female

DRUGS (1)
  1. DIOVAN TRIPLE [Suspect]

REACTIONS (2)
  - UPPER LIMB FRACTURE [None]
  - ACCIDENT [None]
